FAERS Safety Report 6854596-0 (Version None)
Quarter: 2010Q3

REPORT INFORMATION
  Report Type: 
  Country: None (occurrence: None)
  Receive Date: 20100717
  Receipt Date: 20080212
  Transmission Date: 20110219
  Serious: No
  Sender: FDA-Public Use
  Company Number: US-PFIZER INC-2007104859

PATIENT
  Age: 52 Year
  Sex: Female
  Weight: 52.2 kg

DRUGS (9)
  1. CHANTIX [Suspect]
     Indication: SMOKING CESSATION THERAPY
     Route: 048
     Dates: start: 20071124
  2. TRAZODONE HYDROCHLORIDE [Concomitant]
  3. ANTIHYPERTENSIVES [Concomitant]
  4. HYDROCHLOROTHIAZIDE [Concomitant]
  5. VALIUM [Concomitant]
  6. DARVOCET [Concomitant]
  7. MULTI-VITAMINS [Concomitant]
  8. VITAMIN B COMPLEX CAP [Concomitant]
  9. LUTEIN [Concomitant]

REACTIONS (13)
  - ABNORMAL DREAMS [None]
  - DEHYDRATION [None]
  - DISTURBANCE IN ATTENTION [None]
  - DIZZINESS [None]
  - DRUG WITHDRAWAL SYNDROME [None]
  - ENERGY INCREASED [None]
  - FEELING ABNORMAL [None]
  - HEADACHE [None]
  - INSOMNIA [None]
  - MALAISE [None]
  - NAUSEA [None]
  - VERTIGO [None]
  - WEIGHT DECREASED [None]
